FAERS Safety Report 8554186 (Version 6)
Quarter: 2013Q3

REPORT INFORMATION
  Report Type: Spontaneous
  Country: US (occurrence: US)
  Receive Date: 20120509
  Receipt Date: 20130724
  Transmission Date: 20140515
  Serious: Yes (Hospitalization)
  Sender: FDA-Public Use
  Company Number: US-GLAXOSMITHKLINE-A0964444A

PATIENT
  Age: 57 Year
  Sex: Female
  Weight: 56.2 kg

DRUGS (19)
  1. FLOLAN [Suspect]
     Indication: PULMONARY ARTERIAL HYPERTENSION
     Dosage: 27.7NGKM CONTINUOUS
     Route: 042
     Dates: start: 20111027
  2. TORSEMIDE [Concomitant]
  3. AMBIEN [Concomitant]
  4. OS-CAL [Concomitant]
  5. LANTUS [Concomitant]
  6. GABAPENTIN [Concomitant]
  7. ZOFRAN [Concomitant]
  8. PARACETAMOL [Concomitant]
  9. MUCINEX [Concomitant]
  10. SENOKOT-S [Concomitant]
  11. NITROSTAT [Concomitant]
  12. AMARYL [Concomitant]
  13. TRENTAL [Concomitant]
  14. ASPIRIN [Concomitant]
  15. VENTOLIN HFA [Concomitant]
  16. CALCIUM + MAGNESIUM + ZINC [Concomitant]
  17. POTASSIUM [Concomitant]
  18. PREDNISONE [Concomitant]
  19. OXYGEN [Concomitant]
     Dosage: 2L CONTINUOUS

REACTIONS (17)
  - Pneumonia [Unknown]
  - Syncope [Unknown]
  - Transplant [Unknown]
  - Fatigue [Unknown]
  - Asthenia [Unknown]
  - Dizziness postural [Unknown]
  - Hypotension [Unknown]
  - Insomnia [Unknown]
  - Dyspnoea [Unknown]
  - Palpitations [Unknown]
  - Dyspnoea exertional [Unknown]
  - Dizziness [Unknown]
  - Chest discomfort [Unknown]
  - Oxygen saturation decreased [Unknown]
  - Cough [Unknown]
  - Pyrexia [Unknown]
  - Chronic obstructive pulmonary disease [Unknown]
